FAERS Safety Report 6389864-2 (Version None)
Quarter: 2009Q4

REPORT INFORMATION
  Report Type: 
  Country: None (occurrence: None)
  Receive Date: 20091006
  Receipt Date: 20081118
  Transmission Date: 20100525
  Serious: No
  Sender: FDA-Public Use
  Company Number: US-BRISTOL-MYERS SQUIBB COMPANY-14412530

PATIENT
  Age: 68 Year
  Sex: Female

DRUGS (12)
  1. AVAPRO [Suspect]
     Indication: HYPERTENSION
     Dosage: STARTED 2-3 YRS AGO;INITIALLY TAKEN 150 MG TABLET AT NIGHT TIME.
     Route: 048
  2. DILANTIN [Concomitant]
  3. CRESTOR [Concomitant]
  4. REMERON [Concomitant]
  5. CALCIUM [Concomitant]
  6. IRON [Concomitant]
  7. MULTI-VITAMIN [Concomitant]
  8. EFFEXOR [Concomitant]
  9. ASTELIN [Concomitant]
  10. PRILOSEC [Concomitant]
  11. NAPROXEN [Concomitant]
  12. MISOPROSTOL [Concomitant]

REACTIONS (1)
  - DYSGEUSIA [None]
